FAERS Safety Report 8863891 (Version 1)
Quarter: 2012Q4

REPORT INFORMATION
  Report Type: 
  Country: US (occurrence: US)
  Receive Date: 20121024
  Receipt Date: 20121024
  Transmission Date: 20130627
  Serious: No
  Sender: FDA-Public Use
  Company Number: US-AMGEN-USASP2011064484

PATIENT
  Age: 58 Year

DRUGS (14)
  1. ENBREL [Suspect]
     Indication: PRODUCT USED FOR UNKNOWN INDICATION
     Dosage: 50 mg, 2 times/wk
     Route: 058
  2. GABAPENTIN [Concomitant]
     Dosage: 100 mg, UNK
  3. ASACOL [Concomitant]
     Dosage: 400 mg, UNK
  4. TAMSULOSIN [Concomitant]
     Dosage: 0.4 mg, UNK
  5. PAROXETINE [Concomitant]
     Dosage: 10 mg, UNK
  6. LISINOPRIL [Concomitant]
     Dosage: 10 mg, UNK
  7. LANSOPRAZOLE [Concomitant]
     Dosage: 30 mg, UNK
  8. TRAZODONE [Concomitant]
     Dosage: 50 mg, UNK
  9. SEROQUEL XR [Concomitant]
     Dosage: 200 mg, UNK
  10. AMBIEN [Concomitant]
     Dosage: 5 mg, UNK
  11. ZANAFLEX [Concomitant]
     Dosage: 2 mg, UNK
  12. CLOBETASOL 0.05% [Concomitant]
     Dosage: UNK
  13. IBUPROFEN [Concomitant]
     Dosage: UNK
  14. TAZORAC [Concomitant]
     Dosage: UNK

REACTIONS (4)
  - Hyperhidrosis [Unknown]
  - Dyspnoea [Unknown]
  - Psoriasis [Unknown]
  - Nasopharyngitis [Unknown]
